FAERS Safety Report 7125727-2 (Version None)
Quarter: 2010Q4

REPORT INFORMATION
  Report Type: 
  Country: None (occurrence: None)
  Receive Date: 20101129
  Receipt Date: 20101118
  Transmission Date: 20110411
  Serious: Yes (Hospitalization)
  Sender: FDA-Public Use
  Company Number: B0674486B

PATIENT
  Sex: Male
  Weight: 70 kg

DRUGS (3)
  1. PAZOPANIB [Suspect]
     Indication: MALIGNANT NEOPLASM PROGRESSION
     Route: 048
     Dates: start: 20100802, end: 20100903
  2. IFOSFAMIDE [Suspect]
     Indication: MALIGNANT NEOPLASM PROGRESSION
     Route: 048
     Dates: start: 20100809, end: 20100930
  3. IFOSFAMIDE [Concomitant]
     Dates: start: 20101019

REACTIONS (1)
  - ENCEPHALOPATHY [None]
